FAERS Safety Report 7420221-3 (Version None)
Quarter: 2011Q2

REPORT INFORMATION
  Report Type: 
  Country: None (occurrence: None)
  Receive Date: 20110407
  Receipt Date: 20110321
  Transmission Date: 20111010
  Serious: Yes (Hospitalization)
  Sender: FDA-Public Use
  Company Number: 2011-0826

PATIENT
  Age: 75 Year
  Sex: Female

DRUGS (3)
  1. PASIREOTIDE (SOM230) (SOMATOSTATIN) [Suspect]
  2. ACENOCOUMEROL (ACENOCOUMAROL) [Concomitant]
  3. SOMATULINE AUTOSOLUTION 120MG (LANREOTIDE AUTOGEL) (LANREOTIDE) (LAN [Suspect]
     Dosage: 120 MG (120 MG,1 IN 21 D), INTRAMUSCULAR
     Route: 030
     Dates: start: 20100104

REACTIONS (2)
  - DIARRHOEA [None]
  - ANAEMIA [None]
